FAERS Safety Report 16430239 (Version 1)
Quarter: 2019Q2

REPORT INFORMATION
  Report Type: Spontaneous
  Country: US (occurrence: US)
  Receive Date: 20190614
  Receipt Date: 20190614
  Transmission Date: 20190711
  Serious: No
  Sender: FDA-Public Use
  Company Number: US-TEVA-2019-US-1053226

PATIENT
  Sex: Female

DRUGS (1)
  1. EQ MICONAZOLE 3 [Suspect]
     Active Substance: MICONAZOLE
     Indication: ANTIFUNGAL TREATMENT
     Route: 067

REACTIONS (2)
  - Back pain [Unknown]
  - Abdominal pain [Unknown]

NARRATIVE: CASE EVENT DATE: 20190514
